FAERS Safety Report 22279305 (Version 3)
Quarter: 2023Q2

REPORT INFORMATION
  Report Type: Report from Study
  Country: BE (occurrence: BE)
  Receive Date: 20230503
  Receipt Date: 20230612
  Transmission Date: 20230722
  Serious: Yes (Hospitalization, Other)
  Sender: FDA-Public Use
  Company Number: BE-PFIZER INC-PV202300060627

PATIENT
  Age: 84 Year
  Sex: Male

DRUGS (36)
  1. SPIRONOLACTONE [Suspect]
     Active Substance: SPIRONOLACTONE
     Indication: Left ventricular hypertrophy
     Dosage: 25 MG, 1X/DAY
     Route: 048
     Dates: start: 201712, end: 20230310
  2. ACORAMIDIS [Suspect]
     Active Substance: ACORAMIDIS
     Dosage: UNK
     Dates: start: 20220816
  3. BISOPROLOL [Suspect]
     Active Substance: BISOPROLOL
     Indication: Hypertension
     Dosage: 5 MG, 1X/DAY
     Route: 048
     Dates: start: 2015, end: 20230227
  4. BISOPROLOL [Suspect]
     Active Substance: BISOPROLOL
     Dosage: 5 MG, 1X/DAY
     Route: 048
     Dates: start: 20230303, end: 20230310
  5. DAPAGLIFLOZIN [Suspect]
     Active Substance: DAPAGLIFLOZIN
     Indication: Cardiac failure
     Dosage: 10 MG, 1X/DAY
     Route: 048
     Dates: start: 20220330, end: 20230310
  6. BUMETANIDE [Suspect]
     Active Substance: BUMETANIDE
     Indication: Cardiac failure
     Dosage: 0.5 MG, 1X/DAY
     Route: 048
     Dates: start: 20220517, end: 20230310
  7. BUMETANIDE [Suspect]
     Active Substance: BUMETANIDE
     Indication: Cardiac failure
     Dosage: 2 MG, ONCE
     Route: 042
     Dates: start: 20230308, end: 20230308
  8. BUMETANIDE [Suspect]
     Active Substance: BUMETANIDE
     Dosage: 1 MG, 1X/DAY
     Route: 048
     Dates: start: 20220401, end: 20220516
  9. ASPIRIN [Concomitant]
     Active Substance: ASPIRIN
     Indication: Thrombosis prophylaxis
     Dosage: 80 MG, 1X/DAY
     Route: 048
     Dates: start: 2015, end: 20230305
  10. TAMSULOSIN [Concomitant]
     Active Substance: TAMSULOSIN
     Indication: Benign prostatic hyperplasia
     Dosage: 0.4 MG, 1X/DAY
     Route: 048
     Dates: start: 2009
  11. SIMVASTATIN [Concomitant]
     Active Substance: SIMVASTATIN
     Indication: Hypercholesterolaemia
     Dosage: 20 MG, 1X/DAY
     Route: 048
     Dates: start: 2017
  12. PANTOPRAZOLE SODIUM [Concomitant]
     Active Substance: PANTOPRAZOLE SODIUM
     Indication: Prophylaxis
     Dosage: 40 MG, 1X/DAY
     Route: 048
     Dates: start: 2009
  13. ENTRESTO [Concomitant]
     Active Substance: SACUBITRIL\VALSARTAN
     Indication: Cardiac failure
     Dosage: [SACUBITRIL 24MG]/[VALSARTAN 26MG], 0.5 CO
     Route: 048
     Dates: start: 20230309, end: 20230310
  14. CORDARONE [Concomitant]
     Active Substance: AMIODARONE HYDROCHLORIDE
     Indication: Atrial fibrillation
     Dosage: 300 MG, 1X/DAY
     Route: 042
     Dates: start: 20230309, end: 20230309
  15. CORDARONE [Concomitant]
     Active Substance: AMIODARONE HYDROCHLORIDE
     Dosage: 200 MG, 1X/DAY
     Route: 048
     Dates: start: 20230309
  16. EDOXABAN TOSYLATE [Concomitant]
     Active Substance: EDOXABAN TOSYLATE
     Indication: Atrial fibrillation
     Dosage: 30 MG, 1X/DAY FOR AN UNREPORTED
     Route: 048
     Dates: start: 20230306, end: 20230310
  17. FOLIC ACID [Concomitant]
     Active Substance: FOLIC ACID
     Indication: Folate deficiency
     Dosage: 4 MG, 1X/DAY FOR AN UNREPORTED INDICATION
     Route: 048
     Dates: start: 20230302
  18. ACETYLCYSTEINE [Concomitant]
     Active Substance: ACETYLCYSTEINE
     Indication: Cough
     Dosage: 600 MG, 1X/DAY
     Route: 048
     Dates: start: 20191125
  19. MOMETASONE [Concomitant]
     Active Substance: MOMETASONE
     Indication: Rhinitis prophylaxis
     Dosage: DOSE NOT REPORTED, AS NEEDED (PRN)
     Route: 045
     Dates: start: 20220214
  20. IMODIUM [Concomitant]
     Active Substance: LOPERAMIDE HYDROCHLORIDE
     Indication: Diarrhoea
     Dosage: 2 MG PRN PO
     Route: 048
     Dates: start: 20230115
  21. IMODIUM [Concomitant]
     Active Substance: LOPERAMIDE HYDROCHLORIDE
     Dosage: 2 MG, 1X/DAY
     Route: 048
     Dates: start: 20230109, end: 20230114
  22. CEFAZOLIN [Concomitant]
     Active Substance: CEFAZOLIN
     Indication: Sedative therapy
     Dosage: DOSAGE: 2 GRAM FOR SEDATION DURING PACEMAKER IMPLANTATION
     Route: 042
     Dates: start: 20230301, end: 20230301
  23. FENTANYL [Concomitant]
     Active Substance: FENTANYL
     Indication: Sedative therapy
     Dosage: 0.05 MG, ONCE
     Route: 042
     Dates: start: 20230301, end: 20230301
  24. ALIZAPRIDE [Concomitant]
     Active Substance: ALIZAPRIDE
     Indication: Nausea
     Dosage: 50 MG, ONCE
     Route: 042
     Dates: start: 20230302, end: 20230302
  25. TRAMADOL HYDROCHLORIDE [Concomitant]
     Active Substance: TRAMADOL HYDROCHLORIDE
     Indication: Pain
     Dosage: FOR PAIN AFTER PACEMAKER IMPLANTATION
     Route: 042
     Dates: start: 20230302, end: 20230302
  26. MAGNESIUM [Concomitant]
     Active Substance: MAGNESIUM
     Indication: Magnesium deficiency
     Dosage: 3 G, 1X/DAY
     Route: 042
     Dates: start: 20230302, end: 20230303
  27. PROPOFOL [Concomitant]
     Active Substance: PROPOFOL
     Indication: Sedative therapy
     Dosage: 40 MG, ONCE
     Route: 042
     Dates: start: 20230309, end: 20230309
  28. PROSHIELD PLUS [Concomitant]
     Indication: Prophylaxis
     Dosage: 1 APPLICATION, 2X/DAY
     Route: 061
     Dates: start: 20230309
  29. DIAMOX SEQUELS [Concomitant]
     Active Substance: ACETAZOLAMIDE
     Indication: Cardiac failure
     Dosage: 500 MG, ONCE
     Route: 042
     Dates: start: 20230308, end: 20230308
  30. COMIRNATY [Concomitant]
     Active Substance: TOZINAMERAN
     Dosage: DOSE 1, SINGLE
     Route: 058
     Dates: start: 20210331, end: 20210331
  31. COMIRNATY [Concomitant]
     Active Substance: TOZINAMERAN
     Dosage: DOSE 2, SINGLE
     Route: 058
     Dates: start: 20210505, end: 20210505
  32. ISOPROTERENOL HYDROCHLORIDE [Concomitant]
     Active Substance: ISOPROTERENOL HYDROCHLORIDE
     Indication: Bradycardia
     Dosage: 0.2 MG/ML
     Route: 042
     Dates: start: 20230227, end: 20230228
  33. ACORAMIDIS [Concomitant]
     Active Substance: ACORAMIDIS
     Dosage: LAST DOSE PRIOR TO ONSET OF THE EVENT ON 09MAR2023
  34. CORDARONE [Concomitant]
     Active Substance: AMIODARONE HYDROCHLORIDE
     Indication: Atrial fibrillation
     Dosage: 200 MG, 1X/DAY
     Route: 048
  35. CORDARONE [Concomitant]
     Active Substance: AMIODARONE HYDROCHLORIDE
     Dosage: UNK
     Route: 042
     Dates: start: 20230309
  36. ENOXAPARIN SODIUM [Concomitant]
     Active Substance: ENOXAPARIN SODIUM
     Indication: Thrombosis
     Dosage: 40 MG, 1X/DAY
     Route: 058

REACTIONS (3)
  - Atrial fibrillation [Recovered/Resolved]
  - Acute kidney injury [Recovered/Resolved]
  - Atrioventricular block [Recovered/Resolved]

NARRATIVE: CASE EVENT DATE: 20230306
